FAERS Safety Report 21853716 (Version 2)
Quarter: 2023Q1

REPORT INFORMATION
  Report Type: Spontaneous
  Country: US (occurrence: US)
  Receive Date: 20230112
  Receipt Date: 20230123
  Transmission Date: 20230417
  Serious: Yes (Other)
  Sender: FDA-Public Use
  Company Number: US-TEVA-2023-US-2844466

PATIENT
  Age: 55 Year
  Sex: Male

DRUGS (2)
  1. ENZALUTAMIDE [Suspect]
     Active Substance: ENZALUTAMIDE
     Indication: Prostate cancer stage IV
     Route: 065
  2. PEMBROLIZUMAB [Suspect]
     Active Substance: PEMBROLIZUMAB
     Indication: Prostate cancer stage IV
     Dosage: 200 MG
     Route: 065

REACTIONS (4)
  - Type 1 diabetes mellitus [Unknown]
  - Hypothyroidism [Unknown]
  - Diabetic ketoacidosis [Unknown]
  - Drug ineffective [Unknown]
